FAERS Safety Report 17403977 (Version 2)
Quarter: 2020Q2

REPORT INFORMATION
  Report Type: Spontaneous
  Country: US (occurrence: US)
  Receive Date: 20200211
  Receipt Date: 20200616
  Transmission Date: 20200713
  Serious: Yes (Other)
  Sender: FDA-Public Use
  Company Number: US-BAYER-2020-019917

PATIENT
  Age: 18 Year
  Sex: Female

DRUGS (2)
  1. MIRENA [Suspect]
     Active Substance: LEVONORGESTREL
     Indication: MENORRHAGIA
  2. MIRENA [Suspect]
     Active Substance: LEVONORGESTREL
     Indication: CONTRACEPTION
     Dosage: 20 ?G PER DAY, CONTINUOUSLY
     Route: 015
     Dates: start: 20191021, end: 202003

REACTIONS (9)
  - Pelvic pain [Recovering/Resolving]
  - Depression suicidal [Recovering/Resolving]
  - Abdominal pain [Recovering/Resolving]
  - Ovarian cyst [Recovered/Resolved]
  - Scar [Not Recovered/Not Resolved]
  - Headache [Recovering/Resolving]
  - Acne [Recovering/Resolving]
  - Anxiety [Recovering/Resolving]
  - Back pain [Recovering/Resolving]

NARRATIVE: CASE EVENT DATE: 201910
